FAERS Safety Report 5759085-2 (Version None)
Quarter: 2008Q2

REPORT INFORMATION
  Report Type: 
  Country: None (occurrence: None)
  Receive Date: 20080604
  Receipt Date: 20080523
  Transmission Date: 20081010
  Serious: Yes (Hospitalization)
  Sender: FDA-Public Use
  Company Number: IT-ELI_LILLY_AND_COMPANY-IT200805005055

PATIENT
  Sex: Male

DRUGS (1)
  1. STRATTERA [Suspect]
     Indication: ATTENTION DEFICIT/HYPERACTIVITY DISORDER
     Dosage: 78 MG, DAILY (1/D)
     Route: 048
     Dates: start: 20070628, end: 20080424

REACTIONS (5)
  - HOMICIDAL IDEATION [None]
  - PSYCHOMOTOR HYPERACTIVITY [None]
  - STRESS [None]
  - SUICIDAL BEHAVIOUR [None]
  - SUICIDAL IDEATION [None]
